FAERS Safety Report 24804398 (Version 1)
Quarter: 2025Q1

REPORT INFORMATION
  Report Type: Spontaneous
  Country: US (occurrence: None)
  Receive Date: 20250102
  Receipt Date: 20250102
  Transmission Date: 20250409
  Serious: Yes (Death)
  Sender: FDA-CTU
  Company Number: None

PATIENT
  Age: 61 Year
  Sex: Male
  Weight: 54.9 kg

DRUGS (2)
  1. VOSEVI [Suspect]
     Active Substance: SOFOSBUVIR\VELPATASVIR\VOXILAPREVIR
     Indication: Hepatitis viral
     Dosage: OTHER STRENGTH : 400-100-100MG;?OTHER QUANTITY : 400-100-100MG;?FREQUENCY : DAILY;?
     Route: 048
     Dates: start: 20241104, end: 20241127
  2. VOSEVI [Suspect]
     Active Substance: SOFOSBUVIR\VELPATASVIR\VOXILAPREVIR
     Indication: Hepatitis C

REACTIONS (1)
  - Death [None]

NARRATIVE: CASE EVENT DATE: 20241127
